FAERS Safety Report 8016108-8 (Version None)
Quarter: 2011Q4

REPORT INFORMATION
  Report Type: 
  Country: None (occurrence: None)
  Receive Date: 20111230
  Receipt Date: 20110907
  Transmission Date: 20120403
  Serious: No
  Sender: FDA-Public Use
  Company Number: US-BAYER-2011-083663

PATIENT
  Age: 76 Year
  Sex: Male

DRUGS (1)
  1. CIPROFLOXACIN [Suspect]
     Indication: PROSTATE INFECTION
     Dosage: 500 MG, BID
     Route: 048

REACTIONS (1)
  - BURNING SENSATION [None]
